FAERS Safety Report 12850284 (Version 2)
Quarter: 2016Q4

REPORT INFORMATION
  Report Type: Spontaneous
  Country: GB (occurrence: GB)
  Receive Date: 20161014
  Receipt Date: 20161109
  Transmission Date: 20170207
  Serious: Yes (Hospitalization, Other)
  Sender: FDA-Public Use
  Company Number: PHHY2016GB141460

PATIENT
  Age: 47 Year
  Sex: Male

DRUGS (1)
  1. GILENYA [Suspect]
     Active Substance: FINGOLIMOD HYDROCHLORIDE
     Indication: MULTIPLE SCLEROSIS
     Dosage: UNK
     Route: 065
     Dates: start: 20150616

REACTIONS (6)
  - Loss of consciousness [Unknown]
  - Muscle rigidity [Unknown]
  - Musculoskeletal stiffness [Unknown]
  - Seizure [Not Recovered/Not Resolved]
  - Generalised tonic-clonic seizure [Recovered/Resolved with Sequelae]
  - Dyskinesia [Unknown]

NARRATIVE: CASE EVENT DATE: 201508
